FAERS Safety Report 4506391-5 (Version None)
Quarter: 2004Q4

REPORT INFORMATION
  Report Type: 
  Country: None (occurrence: None)
  Receive Date: 20041025
  Receipt Date: 20040401
  Transmission Date: 20050328
  Serious: Yes (Hospitalization)
  Sender: FDA-Public Use
  Company Number: US-JNJFOC-20040100530

PATIENT
  Age: 44 Year
  Sex: Female
  Weight: 61.2356 kg

DRUGS (6)
  1. REMICADE [Suspect]
     Indication: CROHN'S DISEASE
     Dosage: INTRAVENOUS
     Route: 042
     Dates: start: 20030601
  2. PENTASA [Concomitant]
  3. CELEXA [Concomitant]
  4. PREDNISONE [Concomitant]
  5. LEVORA (EUGYNON) [Concomitant]
  6. ENTOCORT (BUDESONIDE) [Concomitant]

REACTIONS (3)
  - ALOPECIA [None]
  - CONDITION AGGRAVATED [None]
  - CROHN'S DISEASE [None]
